FAERS Safety Report 8328312-X (Version None)
Quarter: 2012Q2

REPORT INFORMATION
  Report Type: 
  Country: None (occurrence: None)
  Receive Date: 20120502
  Receipt Date: 20120427
  Transmission Date: 20120825
  Serious: Yes (Other)
  Sender: FDA-Public Use
  Company Number: US-PFIZER INC-2012105312

PATIENT
  Sex: Male
  Weight: 70.295 kg

DRUGS (2)
  1. ADVIL PM [Suspect]
     Indication: SLEEP DISORDER
     Dosage: 400/76 MG (TWO 200/38MG), 1X/DAY
     Route: 048
     Dates: start: 20120409, end: 20120419
  2. MULTI-VITAMINS [Concomitant]
     Dosage: UNK

REACTIONS (6)
  - BACK PAIN [None]
  - FAECES DISCOLOURED [None]
  - EAR DISORDER [None]
  - DIZZINESS [None]
  - CONVULSION [None]
  - PERIPHERAL COLDNESS [None]
